FAERS Safety Report 10090084 (Version 1)
Quarter: 2014Q2

REPORT INFORMATION
  Report Type: Spontaneous
  Country: US (occurrence: None)
  Receive Date: 20140417
  Receipt Date: 20140417
  Transmission Date: 20141212
  Serious: Yes (Death)
  Sender: FDA-Public Use
  Company Number: UTC-047008

PATIENT
  Age: 68 Year
  Sex: Female
  Weight: 51.25 kg

DRUGS (1)
  1. REMODULIN (10 MILLIGRAM/MILLILITERS, INJECTION FOR INFUSION) (TREPROSTINIL SODIUM) [Suspect]
     Indication: PULMONARY ARTERIAL HYPERTENSION
     Dosage: 0.229 UG/KG, 1 IN 1 MIN
     Route: 041

REACTIONS (1)
  - Death [None]
